FAERS Safety Report 8612965-2 (Version None)
Quarter: 2012Q3

REPORT INFORMATION
  Report Type: 
  Country: None (occurrence: None)
  Receive Date: 20120822
  Receipt Date: 20120817
  Transmission Date: 20120928
  Serious: Yes (Other)
  Sender: FDA-Public Use
  Company Number: US-BAYER-2012-058644

PATIENT
  Age: 70 Year
  Sex: Male
  Weight: 75 kg

DRUGS (18)
  1. TRASYLOL [Suspect]
     Indication: CORONARY ARTERY BYPASS
     Dosage: 200 ML PUMP PRIME
     Route: 042
     Dates: start: 20000913, end: 20000913
  2. HEPARIN [Concomitant]
     Dosage: UNK
     Dates: start: 20000913, end: 20000913
  3. MANNITOL [Concomitant]
     Dosage: 25 G, UNK
     Dates: start: 20000913, end: 20000913
  4. NORVASC [Concomitant]
     Dosage: 10 MG, QD
     Route: 048
  5. STOMACH-60 [Concomitant]
  6. FENTANYL [Concomitant]
     Dosage: UNK
     Dates: start: 20000913, end: 20000913
  7. PROTAMINE SULFATE [Concomitant]
     Dosage: UNK
     Dates: start: 20000913, end: 20000913
  8. VANCOMYCIN [Concomitant]
     Dosage: 1 G, UNK
     Dates: start: 20000913, end: 20000913
  9. IMDUR [Concomitant]
     Dosage: 180 MG, UNK
  10. ASPIRIN [Concomitant]
     Dosage: UNK UNK, QD
  11. SOLU-MEDROL [Concomitant]
     Dosage: UNK
     Dates: start: 20000913, end: 20000913
  12. ZINACEF [Concomitant]
     Dosage: UNK
     Dates: start: 20000913, end: 20000913
  13. CEFUROXIME [Concomitant]
     Dosage: UNK
     Dates: start: 20000913, end: 20000913
  14. VERSED [Concomitant]
     Dosage: UNK
     Dates: start: 20000913, end: 20000913
  15. CORGARD [Concomitant]
     Dosage: 20 MG, QD
  16. DOPAMINE HCL [Concomitant]
  17. LASIX [Concomitant]
  18. NITROGLYCERIN [Concomitant]

REACTIONS (7)
  - ATRIAL FLUTTER [None]
  - MYOCARDIAL ISCHAEMIA [None]
  - RENAL FAILURE ACUTE [None]
  - SEPSIS [None]
  - PERITONITIS [None]
  - VENTRICULAR TACHYCARDIA [None]
  - VENTRICULAR FIBRILLATION [None]
